FAERS Safety Report 21729145 (Version 2)
Quarter: 2022Q4

REPORT INFORMATION
  Report Type: Report from Study
  Country: AR (occurrence: None)
  Receive Date: 20221214
  Receipt Date: 20221223
  Transmission Date: 20230113
  Serious: Yes (Death, Hospitalization)
  Sender: FDA-Public Use
  Company Number: AR-ROCHE-3239149

PATIENT
  Age: 63 Year
  Sex: Male
  Weight: 70 kg

DRUGS (16)
  1. RITUXIMAB [Suspect]
     Active Substance: RITUXIMAB
     Indication: B-cell lymphoma
     Dosage: ON 06/DEC/2022, THE PATIENT WAS RECEIVED MOST RECENT DOSE OF RITUXIMAB AT 675 MG PRIOR TO AE/SAE ONS
     Route: 041
     Dates: start: 20221006
  2. OXALIPLATIN [Suspect]
     Active Substance: OXALIPLATIN
     Indication: B-cell lymphoma
     Dosage: ON 07/DEC/2022, THE PATIENT WAS RECEIVED MOST RECENT DOSE OF OXALIPLATIN AT 180 MG PRIOR TO AE/SAE O
     Route: 042
  3. GEMCITABINE [Suspect]
     Active Substance: GEMCITABINE
     Indication: B-cell lymphoma
     Dosage: ON 07/DEC/2022, THE PATIENT WAS RECEIVED MOST RECENT DOSE OF GEMCITIABINE AT 1800 MG PRIOR TO AE/SAE
     Route: 042
     Dates: start: 20221007
  4. ALLOPURINOL [Concomitant]
     Active Substance: ALLOPURINOL
     Dates: start: 20220803
  5. CALCIUM CARBONATE [Concomitant]
     Active Substance: CALCIUM CARBONATE
     Dates: start: 20220803
  6. OMEPRAZOLE [Concomitant]
     Active Substance: OMEPRAZOLE
     Dates: start: 20220803
  7. VALSARTAN [Concomitant]
     Active Substance: VALSARTAN
     Indication: Hypertension
     Dosage: YES
     Dates: start: 2016
  8. SULFAMETHOXAZOLE\TRIMETHOPRIM [Concomitant]
     Active Substance: SULFAMETHOXAZOLE\TRIMETHOPRIM
     Dosage: YES
     Dates: start: 20221021
  9. PLATELETS [Concomitant]
     Active Substance: HUMAN PLATELET, ALLOGENIC
     Indication: Thrombocytopenia
     Dosage: YES
     Route: 042
     Dates: start: 20221103
  10. ACETAMINOPHEN [Concomitant]
     Active Substance: ACETAMINOPHEN
     Indication: Prophylaxis
     Dosage: YES
     Dates: start: 20221109, end: 20221109
  11. ACETAMINOPHEN [Concomitant]
     Active Substance: ACETAMINOPHEN
     Dosage: YES
     Dates: start: 20221206, end: 20221206
  12. BENADRYL (ARGENTINA) [Concomitant]
     Indication: Prophylaxis
     Dosage: DRUG DOSE FIRST ADMINISTERED IS 7  ;ONGOING: YESYES
     Dates: start: 20221109, end: 20221109
  13. BENADRYL (ARGENTINA) [Concomitant]
     Dosage: NOYES
     Dates: start: 20221206, end: 20221206
  14. DEXAMETHASONE [Concomitant]
     Active Substance: DEXAMETHASONE
     Indication: Prophylaxis
     Route: 042
     Dates: start: 20221109, end: 20221109
  15. DEXAMETHASONE [Concomitant]
     Active Substance: DEXAMETHASONE
     Route: 042
     Dates: start: 20221206, end: 20221206
  16. ONDANSETRON [Concomitant]
     Active Substance: ONDANSETRON
     Indication: Prophylaxis
     Dates: start: 20221110, end: 20221110

REACTIONS (1)
  - Pneumonia [Fatal]

NARRATIVE: CASE EVENT DATE: 20221208
